FAERS Safety Report 4356643-7 (Version None)
Quarter: 2004Q2

REPORT INFORMATION
  Report Type: 
  Country: None (occurrence: None)
  Receive Date: 20040507
  Receipt Date: 20040419
  Transmission Date: 20050107
  Serious: Yes (Hospitalization)
  Sender: FDA-Public Use
  Company Number: JP_040403025

PATIENT
  Age: 51 Year
  Sex: Female
  Weight: 60 kg

DRUGS (4)
  1. ONCOVIN [Suspect]
     Indication: CERVIX CARCINOMA
     Dosage: 1.1 MG OTHER
     Route: 050
     Dates: start: 20031213, end: 20040313
  2. CISPLATIN [Concomitant]
  3. BLEO (BLEOMYCIN HYDROCHLORIDE) [Concomitant]
  4. MITOMYCIN-C BULK POWDER [Concomitant]

REACTIONS (1)
  - DEEP VEIN THROMBOSIS [None]
